FAERS Safety Report 10041915 (Version 2)
Quarter: 2014Q2

REPORT INFORMATION
  Report Type: Spontaneous
  Country: US (occurrence: US)
  Receive Date: 20140327
  Receipt Date: 20140424
  Transmission Date: 20141212
  Serious: Yes (Death)
  Sender: FDA-Public Use
  Company Number: US-FRI-1000065785

PATIENT
  Age: 60 Year
  Sex: Male

DRUGS (15)
  1. VIIBRYD [Suspect]
     Indication: DEPRESSION
     Dosage: 10 MG
     Route: 048
     Dates: start: 20140202, end: 20140208
  2. VIIBRYD [Suspect]
     Dosage: 20 MG
     Route: 048
     Dates: start: 20140209, end: 20140215
  3. VIIBRYD [Suspect]
     Dosage: 40 MG
     Route: 048
     Dates: start: 20140216
  4. LEXAPRO [Suspect]
     Dosage: 10 MG
     Dates: start: 20140113, end: 20140202
  5. SEROQUEL XR [Concomitant]
     Indication: DEPRESSION
     Dosage: 50 MG QHS
     Dates: start: 20140202, end: 20140214
  6. XANAX [Concomitant]
     Indication: INSOMNIA
     Dosage: 0.5 MG
     Dates: end: 20140217
  7. CRESTOR [Concomitant]
     Indication: BLOOD CHOLESTEROL INCREASED
  8. SEROQUEL [Concomitant]
     Indication: DEPRESSION
     Dosage: 50 MG QHS
     Dates: start: 20140214, end: 20140216
  9. SEROQUEL [Concomitant]
     Dosage: 100 MG QHS
     Dates: start: 20140217, end: 20140308
  10. AMBIEN [Concomitant]
     Dosage: 12.5 MG
     Dates: end: 20140217
  11. AMBIEN [Concomitant]
     Dosage: 12.5 MG
     Dates: start: 20140308, end: 20140309
  12. HALCION [Concomitant]
     Dosage: 0.25 MG QHS
     Dates: start: 20140217, end: 20140308
  13. XANAX XR [Concomitant]
     Dosage: 3 MG
     Dates: start: 20140217
  14. ZYPREXA [Concomitant]
     Dosage: 10 MG
     Dates: start: 20140308
  15. SILENOR [Concomitant]
     Dosage: 1 TABLET QHS
     Dates: start: 20140309

REACTIONS (2)
  - Completed suicide [Fatal]
  - Gun shot wound [Fatal]
